FAERS Safety Report 6207387-8 (Version None)
Quarter: 2009Q2

REPORT INFORMATION
  Report Type: 
  Country: None (occurrence: None)
  Receive Date: 20090528
  Receipt Date: 20090516
  Transmission Date: 20091009
  Serious: Yes (Other)
  Sender: FDA-Public Use
  Company Number: US-PFIZER INC-2009206136

PATIENT
  Sex: Female
  Weight: 77.098 kg

DRUGS (2)
  1. LYRICA [Suspect]
     Dosage: 50 MG, 3X/DAY
     Route: 048
     Dates: start: 20090330, end: 20090427
  2. ALL OTHER THERAPEUTIC PRODUCTS [Concomitant]

REACTIONS (8)
  - DYSPNOEA [None]
  - EYE INFECTION [None]
  - FACE OEDEMA [None]
  - GINGIVAL PAIN [None]
  - INSOMNIA [None]
  - JOINT SWELLING [None]
  - LIP SWELLING [None]
  - METASTATIC UTERINE CANCER [None]
